FAERS Safety Report 12464448 (Version 2)
Quarter: 2017Q4

REPORT INFORMATION
  Report Type: Spontaneous
  Country: US (occurrence: US)
  Receive Date: 20160614
  Receipt Date: 20171010
  Transmission Date: 20180320
  Serious: Yes (Hospitalization, Other)
  Sender: FDA-Public Use
  Company Number: US-BAYER-2016-115851

PATIENT
  Age: 31 Year
  Sex: Female

DRUGS (4)
  1. CITALOPRAM [Concomitant]
     Active Substance: CITALOPRAM HYDROBROMIDE
  2. AMBIEN [Concomitant]
     Active Substance: ZOLPIDEM TARTRATE
  3. DICLOFENAC SODIUM. [Concomitant]
     Active Substance: DICLOFENAC SODIUM
  4. MIRENA [Suspect]
     Active Substance: LEVONORGESTREL
     Dosage: 20 MCG/24HR, CONT
     Route: 015
     Dates: start: 20130925, end: 20140618

REACTIONS (7)
  - Papilloedema [None]
  - Vision blurred [None]
  - Nausea [None]
  - Cluster headache [None]
  - Blindness transient [None]
  - Dizziness [None]
  - Idiopathic intracranial hypertension [None]

NARRATIVE: CASE EVENT DATE: 201403
